FAERS Safety Report 9197807 (Version 1)
Quarter: 2013Q1

REPORT INFORMATION
  Report Type: Spontaneous
  Country: US (occurrence: US)
  Receive Date: 20130328
  Receipt Date: 20130328
  Transmission Date: 20140127
  Serious: Yes (Other)
  Sender: FDA-Public Use
  Company Number: US-PFIZER INC-2013096430

PATIENT
  Age: 32 Year
  Sex: Female
  Weight: 64.85 kg

DRUGS (1)
  1. GEODON [Suspect]
     Indication: EMOTIONAL DISORDER
     Dosage: 40 MG, 1X/DAY
     Dates: start: 2012

REACTIONS (5)
  - Drug dependence [Unknown]
  - Nervousness [Not Recovered/Not Resolved]
  - Anxiety [Not Recovered/Not Resolved]
  - Headache [Not Recovered/Not Resolved]
  - Abdominal pain upper [Unknown]
